FAERS Safety Report 4503336-9 (Version None)
Quarter: 2004Q4

REPORT INFORMATION
  Report Type: 
  Country: None (occurrence: None)
  Receive Date: 20041117
  Receipt Date: 20041115
  Transmission Date: 20050328
  Serious: Yes (Hospitalization)
  Sender: FDA-Public Use
  Company Number: JP-BRISTOL-MYERS SQUIBB COMPANY-12767430

PATIENT
  Age: 70 Year
  Sex: Male

DRUGS (1)
  1. PARAPLATIN [Suspect]
     Indication: NON-HODGKIN'S LYMPHOMA
     Route: 041

REACTIONS (1)
  - PYREXIA [None]
